FAERS Safety Report 4516434-0 (Version None)
Quarter: 2004Q4

REPORT INFORMATION
  Report Type: 
  Country: None (occurrence: None)
  Receive Date: 20041202
  Receipt Date: 20040621
  Transmission Date: 20050328
  Serious: No
  Sender: FDA-Public Use
  Company Number: US-GLAXOSMITHKLINE-A0515398A

PATIENT
  Age: 58 Year
  Sex: Female

DRUGS (2)
  1. AUGMENTIN '125' [Suspect]
     Indication: BRONCHITIS
     Dosage: 2TAB TWICE PER DAY
     Route: 048
     Dates: start: 20040621
  2. ZYRTEC [Concomitant]

REACTIONS (1)
  - ABDOMINAL DISCOMFORT [None]
